FAERS Safety Report 20190452 (Version 6)
Quarter: 2025Q2

REPORT INFORMATION
  Report Type: Report from Study
  Country: US (occurrence: US)
  Receive Date: 20211215
  Receipt Date: 20250411
  Transmission Date: 20250717
  Serious: Yes (Hospitalization)
  Sender: RANBAXY
  Company Number: US-SUN PHARMACEUTICAL INDUSTRIES LTD-2021R1-320051

PATIENT
  Sex: Male

DRUGS (1)
  1. BOSENTAN [Suspect]
     Active Substance: BOSENTAN
     Indication: Product used for unknown indication
     Dosage: 125 MILLIGRAM, BID
     Route: 048

REACTIONS (2)
  - Liver function test increased [Unknown]
  - Nasopharyngitis [Unknown]
